FAERS Safety Report 4911038-X (Version None)
Quarter: 2006Q1

REPORT INFORMATION
  Report Type: 
  Country: None (occurrence: None)
  Receive Date: 20060214
  Receipt Date: 20051007
  Transmission Date: 20060701
  Serious: Yes (Hospitalization, Disabling)
  Sender: FDA-Public Use
  Company Number: US-MERCK-0510USA06359

PATIENT
  Age: 82 Year
  Sex: Female

DRUGS (10)
  1. VIOXX [Suspect]
     Indication: OSTEOARTHRITIS
     Route: 048
     Dates: start: 20000201
  2. VIOXX [Suspect]
     Route: 048
     Dates: start: 20010816
  3. PRILOSEC [Concomitant]
     Route: 065
  4. DIDRONEL [Concomitant]
     Route: 065
  5. CALCIUM (UNSPECIFIED) [Concomitant]
     Route: 065
  6. VITAMIN D (UNSPECIFIED) [Concomitant]
     Route: 065
  7. TOPROL-XL [Concomitant]
     Route: 065
  8. LASIX [Concomitant]
     Route: 065
  9. ASPIRIN [Concomitant]
     Route: 065
  10. ALTACE [Concomitant]
     Route: 065

REACTIONS (12)
  - ACUTE MYOCARDIAL INFARCTION [None]
  - CARDIAC DISORDER [None]
  - CARDIAC FAILURE CONGESTIVE [None]
  - CHONDROCALCINOSIS [None]
  - CORONARY ARTERY DISEASE [None]
  - DIVERTICULUM [None]
  - EJECTION FRACTION DECREASED [None]
  - MYOCARDIAL INFARCTION [None]
  - PELVIC HAEMATOMA [None]
  - RENAL CYST [None]
  - VENTRICULAR DYSFUNCTION [None]
  - VENTRICULAR HYPERTROPHY [None]
